FAERS Safety Report 13282334 (Version 2)
Quarter: 2017Q1

REPORT INFORMATION
  Report Type: Spontaneous
  Country: DE (occurrence: DE)
  Receive Date: 20170301
  Receipt Date: 20170318
  Transmission Date: 20170428
  Serious: Yes (Hospitalization)
  Sender: FDA-Public Use
  Company Number: DE-AUROBINDO-AUR-APL-2017-29739

PATIENT
  Age: 48 Year
  Sex: Male
  Weight: 120 kg

DRUGS (6)
  1. LEVETIRACETAM. [Concomitant]
     Active Substance: LEVETIRACETAM
     Indication: PROPHYLAXIS
     Dosage: 250 MG, TWO TIMES A DAY
     Route: 048
     Dates: start: 20161114
  2. PANTOPRAZOLE [Concomitant]
     Active Substance: PANTOPRAZOLE SODIUM
     Indication: PROPHYLAXIS
     Dosage: 20 MG, ONCE A DAY
     Route: 048
     Dates: start: 20161114
  3. OLANZAPINE PUREN 5MG [Suspect]
     Active Substance: OLANZAPINE
     Indication: SCHIZOPHRENIA
     Dosage: 5 MG, ONCE A DAY
     Route: 048
     Dates: start: 20161114
  4. CLONIDIN RATIOPHARM [Interacting]
     Active Substance: CLONIDINE HYDROCHLORIDE
     Indication: HYPERTENSION
     Dosage: 75 MG, FOUR TIMES/DAY
     Route: 048
     Dates: start: 20161114
  5. NITRENDIPIN [Concomitant]
     Active Substance: NITRENDIPINE
     Indication: PRODUCT USED FOR UNKNOWN INDICATION
     Dosage: UNK, PRN
     Route: 048
  6. OLANZAPINE PUREN 5MG [Interacting]
     Active Substance: OLANZAPINE
     Dosage: 15 MG, ONCE A DAY
     Route: 048
     Dates: start: 20161114

REACTIONS (3)
  - Hypertension [Recovered/Resolved]
  - Drug interaction [Unknown]
  - Drug ineffective [Unknown]

NARRATIVE: CASE EVENT DATE: 20161114
